FAERS Safety Report 8508373-5 (Version None)
Quarter: 2012Q3

REPORT INFORMATION
  Report Type: 
  Country: None (occurrence: None)
  Receive Date: 20120713
  Receipt Date: 20120703
  Transmission Date: 20120928
  Serious: Yes (Life-Threatening)
  Sender: FDA-Public Use
  Company Number: US-JNJFOC-20110809061

PATIENT
  Sex: Male
  Weight: 111.13 kg

DRUGS (8)
  1. STELARA [Suspect]
     Indication: PSORIASIS
     Route: 058
     Dates: start: 20110620
  2. BENAZEPRIL HYDROCHLORIDE [Concomitant]
     Dates: start: 20080101
  3. CORTICOSTEROIDS [Suspect]
     Indication: PRODUCT USED FOR UNKNOWN INDICATION
  4. CELEBREX [Concomitant]
     Route: 048
     Dates: start: 20101116
  5. STELARA [Suspect]
     Route: 058
     Dates: start: 20110512
  6. SULFASALAZINE [Suspect]
     Indication: PRODUCT USED FOR UNKNOWN INDICATION
     Route: 048
     Dates: start: 20110620, end: 20110908
  7. GLUCOPHAGE [Concomitant]
     Dates: start: 20080101
  8. LIPITOR [Concomitant]
     Dates: start: 20080101

REACTIONS (1)
  - MULTIPLE MYELOMA [None]
